FAERS Safety Report 9719304 (Version 4)
Quarter: 2014Q3

REPORT INFORMATION
  Report Type: Report from Study
  Country: BR (occurrence: BR)
  Receive Date: 20131127
  Receipt Date: 20140729
  Transmission Date: 20150326
  Serious: Yes (Hospitalization, Other)
  Sender: FDA-Public Use
  Company Number: PHHY2013BR137177

PATIENT
  Sex: Female
  Weight: 48 kg

DRUGS (6)
  1. ACLASTA [Suspect]
     Active Substance: ZOLEDRONIC ACID
     Indication: OSTEOPOROSIS
     Dosage: 5 MG, UNK
     Route: 042
     Dates: start: 2013
  2. CARVEDILOL. [Concomitant]
     Active Substance: CARVEDILOL
     Indication: CARDIAC DISORDER
     Dosage: 1 DF, A DAY
  3. TAMOXIFENO [Concomitant]
     Indication: BREAST CANCER
     Dosage: 1 DF, A DAY
     Dates: start: 2009
  4. METFORMIN [Concomitant]
     Active Substance: METFORMIN HYDROCHLORIDE
     Indication: DIABETES MELLITUS
     Dosage: 2 DF, A DAY
  5. FUROSEMIDE. [Concomitant]
     Active Substance: FUROSEMIDE
     Indication: DIURETIC THERAPY
     Dosage: 0.5 DF, DAILY
     Dates: start: 2013
  6. DEPURA [Concomitant]
     Active Substance: CHOLECALCIFEROL
     Indication: OSTEOPOROSIS
     Dosage: 10 DRP, UNK
     Dates: start: 201402

REACTIONS (6)
  - Malaise [Unknown]
  - Pneumonia [Recovering/Resolving]
  - Pyrexia [Unknown]
  - Respiratory disorder [Recovering/Resolving]
  - Feeling abnormal [Unknown]
  - Influenza [Recovering/Resolving]
